FAERS Safety Report 9144180 (Version 3)
Quarter: 2013Q1

REPORT INFORMATION
  Report Type: Report from Study
  Country: US (occurrence: US)
  Receive Date: 20130306
  Receipt Date: 20130311
  Transmission Date: 20140127
  Serious: Yes (Hospitalization)
  Sender: FDA-Public Use
  Company Number: US-ROCHE-1195002

PATIENT
  Age: 45 Year
  Sex: Male
  Weight: 103.28 kg

DRUGS (8)
  1. BEVACIZUMAB [Suspect]
     Indication: GLIOBLASTOMA
     Route: 065
     Dates: start: 201212
  2. DEXAMETHASONE [Concomitant]
     Route: 048
  3. LEVEMIR [Concomitant]
     Route: 065
  4. METFORMIN HCL [Concomitant]
     Route: 065
  5. WARFARIN [Concomitant]
     Dosage: 7.5 MG ON M/W/F, 5 MG ON T/TH/SAT/SUN
     Route: 065
  6. NOVOLOG [Concomitant]
  7. FLAXSEED [Concomitant]
     Dosage: 1-2 TEA SPOON
     Route: 065
  8. VITAMIN B12 [Concomitant]
     Route: 065

REACTIONS (2)
  - Convulsion [Unknown]
  - Glioblastoma [Unknown]
